FAERS Safety Report 17675476 (Version 5)
Quarter: 2020Q2

REPORT INFORMATION
  Report Type: Report from Study
  Country: AR (occurrence: AR)
  Receive Date: 20200416
  Receipt Date: 20200505
  Transmission Date: 20200714
  Serious: Yes (Hospitalization, Other)
  Sender: FDA-Public Use
  Company Number: AR-INCYTE CORPORATION-2020IN003554

PATIENT

DRUGS (2)
  1. JAKAVI [Suspect]
     Active Substance: RUXOLITINIB
     Indication: MYELOFIBROSIS
     Dosage: 20 MG, QD
     Route: 065
     Dates: start: 20150401, end: 20191231
  2. JAKAVI [Suspect]
     Active Substance: RUXOLITINIB
     Dosage: UNK
     Route: 065
     Dates: start: 20200121

REACTIONS (8)
  - Pain in extremity [Not Recovered/Not Resolved]
  - Blood pressure abnormal [Recovering/Resolving]
  - Anaemia [Unknown]
  - Hypertension [Unknown]
  - Arthralgia [Not Recovered/Not Resolved]
  - Skin lesion [Unknown]
  - Asthenia [Recovering/Resolving]
  - Inappropriate schedule of product administration [Unknown]

NARRATIVE: CASE EVENT DATE: 201912
